FAERS Safety Report 5710647-8 (Version None)
Quarter: 2008Q2

REPORT INFORMATION
  Report Type: 
  Country: None (occurrence: None)
  Receive Date: 20080415
  Receipt Date: 20080331
  Transmission Date: 20081010
  Serious: Yes (Hospitalization)
  Sender: FDA-Public Use
  Company Number: S08-FRA-01375-01

PATIENT
  Age: 81 Year
  Sex: Female

DRUGS (12)
  1. CITALOPRAM HYDROBROMIDE [Suspect]
     Dosage: 20 MG QD PO
     Route: 048
     Dates: end: 20080117
  2. INDAPAMIDE [Suspect]
     Indication: HYPERTENSION
     Dosage: 1 UNK QD PO
     Route: 048
     Dates: start: 20070701, end: 20080117
  3. COZAAR [Concomitant]
  4. HYPERIUM (RILMENIDINE) [Concomitant]
  5. AMLODIPINE BESYLATE [Concomitant]
  6. SECTRAL [Concomitant]
  7. ZOCOR [Concomitant]
  8. VASTAREL (TRIMETAZIDINE) [Concomitant]
  9. LORAZEPAM [Concomitant]
  10. DOMPERIDONE [Concomitant]
  11. OXYBUTYNINE (OXYBUTYNIN) [Concomitant]
  12. PHLOROGLUCINOL [Concomitant]

REACTIONS (6)
  - ABDOMINAL PAIN [None]
  - ANOREXIA [None]
  - BLOOD PRESSURE INCREASED [None]
  - CONSTIPATION [None]
  - HYPOKALAEMIA [None]
  - HYPONATRAEMIA [None]
